FAERS Safety Report 15289043 (Version 2)
Quarter: 2018Q3

REPORT INFORMATION
  Report Type: Report from Study
  Country: AR (occurrence: AR)
  Receive Date: 20180817
  Receipt Date: 20180903
  Transmission Date: 20181010
  Serious: Yes (Hospitalization)
  Sender: FDA-Public Use
  Company Number: AR-EMD SERONO-E2B_90055458

PATIENT
  Sex: Female

DRUGS (1)
  1. REBIF [Suspect]
     Active Substance: INTERFERON BETA-1A
     Indication: MULTIPLE SCLEROSIS
     Route: 058
     Dates: start: 20030512

REACTIONS (2)
  - Bacterial infection [Recovering/Resolving]
  - Ill-defined disorder [Unknown]
